FAERS Safety Report 5217517-2 (Version None)
Quarter: 2007Q1

REPORT INFORMATION
  Report Type: 
  Country: None (occurrence: None)
  Receive Date: 20070124
  Receipt Date: 20070122
  Transmission Date: 20070707
  Serious: Yes (Other)
  Sender: FDA-Public Use
  Company Number: JP-BRISTOL-MYERS SQUIBB COMPANY-13651294

PATIENT
  Age: 37 Year
  Sex: Female

DRUGS (4)
  1. PACLITAXEL [Suspect]
     Indication: BREAST CANCER
     Dates: start: 20040901, end: 20041201
  2. DOXORUBICIN HCL [Suspect]
     Indication: BREAST CANCER
     Dates: start: 20030201
  3. DOCETAXEL [Suspect]
     Indication: BREAST CANCER
     Dates: start: 20030201, end: 20041201
  4. TRASTUZUMAB [Suspect]
     Indication: BREAST CANCER
     Dates: start: 20030801, end: 20040801

REACTIONS (3)
  - OEDEMA PERIPHERAL [None]
  - PIGMENTATION DISORDER [None]
  - SCLERODERMA [None]
